FAERS Safety Report 6112412-9 (Version None)
Quarter: 2009Q1

REPORT INFORMATION
  Report Type: 
  Country: None (occurrence: None)
  Receive Date: 20090311
  Receipt Date: 20090311
  Transmission Date: 20090719
  Serious: Yes (Life-Threatening, Hospitalization, Disabling)
  Sender: FDA-Public Use
  Company Number: None

PATIENT
  Age: 67 Year
  Sex: Male

DRUGS (2)
  1. SIMVASTATIN [Suspect]
     Indication: HYPERLIPIDAEMIA
     Dosage: 40 MG AT BEDTIME PO
     Route: 048
     Dates: start: 20080115, end: 20080515
  2. GEMFIBROZIL [Suspect]
     Indication: HYPERLIPIDAEMIA
     Dates: start: 20071019, end: 20080515

REACTIONS (11)
  - ACUTE RESPIRATORY FAILURE [None]
  - ASTHENIA [None]
  - CONFUSIONAL STATE [None]
  - DIALYSIS [None]
  - HEPATIC ENZYME INCREASED [None]
  - HEPATIC FUNCTION ABNORMAL [None]
  - MENTAL STATUS CHANGES [None]
  - RENAL FAILURE ACUTE [None]
  - RESPIRATORY DEPRESSION [None]
  - RHABDOMYOLYSIS [None]
  - SYNCOPE [None]
